FAERS Safety Report 6879269-X (Version None)
Quarter: 2010Q3

REPORT INFORMATION
  Report Type: 
  Country: None (occurrence: None)
  Receive Date: 20100728
  Receipt Date: 20100723
  Transmission Date: 20110219
  Serious: Yes (Hospitalization)
  Sender: FDA-Public Use
  Company Number: FR-WYE-G06447010

PATIENT
  Age: 58 Year
  Sex: Female

DRUGS (5)
  1. ADVIL LIQUI-GELS [Suspect]
     Dosage: UNKNOWN
     Route: 048
     Dates: start: 20100420, end: 20100430
  2. CRESTOR [Concomitant]
     Dosage: UNKNOWN
     Route: 048
  3. EXFORGE [Concomitant]
     Dosage: UNKNOWN
  4. REMICADE [Suspect]
     Indication: PSORIASIS
     Dosage: UNKNOWN
     Route: 042
     Dates: start: 20100411, end: 20100411
  5. METFORMIN HCL [Concomitant]
     Dosage: UNKNOWN
     Route: 048

REACTIONS (3)
  - ERYSIPELAS [None]
  - PUSTULAR PSORIASIS [None]
  - STREPTOCOCCAL SEPSIS [None]
